FAERS Safety Report 12383263 (Version 3)
Quarter: 2016Q2

REPORT INFORMATION
  Report Type: Spontaneous
  Country: JP (occurrence: JP)
  Receive Date: 20160518
  Receipt Date: 20160607
  Transmission Date: 20160815
  Serious: Yes (Hospitalization, Other)
  Sender: FDA-Public Use
  Company Number: JP-ABBVIE-16P-087-1593869-00

PATIENT
  Age: 72 Year
  Sex: Male
  Weight: 67.1 kg

DRUGS (10)
  1. SEROQUEL [Interacting]
     Active Substance: QUETIAPINE FUMARATE
     Indication: PROGRESSIVE SUPRANUCLEAR PALSY
     Dosage: 12.5 MG IN AM, 25 MG IN PM
     Route: 048
     Dates: start: 20130813, end: 20160318
  2. BENIDIPINE HYDROCHLORIDE [Concomitant]
     Active Substance: BENIDIPINE HYDROCHLORIDE
     Indication: HYPERTENSION
     Route: 048
     Dates: start: 20140714
  3. SILODOSIN [Concomitant]
     Active Substance: SILODOSIN
     Indication: BENIGN PROSTATIC HYPERPLASIA
     Route: 048
     Dates: start: 20131026
  4. BENZBROMARONE [Concomitant]
     Active Substance: BENZBROMARONE
     Indication: GOUT
     Route: 048
     Dates: start: 20130415
  5. LEVODOPA/CARBIDOPA HYDRATE [Concomitant]
     Indication: HEPATITIS C
     Route: 048
     Dates: start: 20150107
  6. VIEKIRAX [Suspect]
     Active Substance: OMBITASVIR\PARITAPREVIR\RITONAVIR
     Indication: HEPATITIS C
     Route: 048
     Dates: start: 20160314, end: 20160325
  7. POTASSIUM CITRATE/SODIUM CITRATE HYDRATE [Concomitant]
     Indication: GOUT
     Route: 048
     Dates: start: 20130415
  8. ESZOPICLONE. [Concomitant]
     Active Substance: ESZOPICLONE
     Indication: INSOMNIA
     Route: 048
     Dates: end: 20160318
  9. DUTASTERIDE. [Concomitant]
     Active Substance: DUTASTERIDE
     Indication: BENIGN PROSTATIC HYPERPLASIA
     Route: 048
     Dates: start: 20150914
  10. SPHERICAL CARBONACEOUS ADSORBENT [Concomitant]
     Indication: AZOTAEMIA
     Route: 048

REACTIONS (3)
  - Drug-induced liver injury [Unknown]
  - Somnolence [Recovered/Resolved]
  - Drug interaction [Unknown]

NARRATIVE: CASE EVENT DATE: 20160316
